FAERS Safety Report 12288056 (Version 1)
Quarter: 2016Q2

REPORT INFORMATION
  Report Type: Spontaneous
  Country: US (occurrence: US)
  Receive Date: 20160420
  Receipt Date: 20160420
  Transmission Date: 20160815
  Serious: No
  Sender: FDA-Public Use
  Company Number: ADR-2015-01405

PATIENT
  Age: 49 Year
  Sex: Female

DRUGS (1)
  1. BACLOFEN. [Suspect]
     Active Substance: BACLOFEN
     Dosage: 700 MCG/DAY APPROXIMATE
     Route: 037

REACTIONS (2)
  - Pain [Unknown]
  - Hypertonia [Unknown]
